FAERS Safety Report 9078704 (Version 1)
Quarter: 2013Q1

REPORT INFORMATION
  Report Type: Report from Study
  Country: US (occurrence: US)
  Receive Date: 20130130
  Receipt Date: 20130130
  Transmission Date: 20140127
  Serious: No
  Sender: FDA-Public Use
  Company Number: US-ABBOTT-12P-163-0949290-00

PATIENT
  Age: 65 Year
  Sex: Male

DRUGS (9)
  1. HUMIRA 40 MG/0.8 ML PEN [Suspect]
     Indication: PSORIATIC ARTHROPATHY
     Dates: start: 20120612
  2. METHOTREXATE [Suspect]
     Indication: PROSTATIC SPECIFIC ANTIGEN
     Dosage: PILLS, 6 WEEKLY
  3. SIMVASTATIN [Concomitant]
     Indication: BLOOD CHOLESTEROL INCREASED
  4. OMEPRAZOLE [Concomitant]
     Indication: DYSPEPSIA
  5. BENICAR HCT [Concomitant]
     Indication: BLOOD PRESSURE
  6. VOLTAREN [Concomitant]
     Indication: ANTIINFLAMMATORY THERAPY
  7. FLOMAX [Concomitant]
     Indication: URINARY RETENTION
     Dosage: DAILY
  8. UNKNOWN VITAMINS [Concomitant]
     Indication: PRODUCT USED FOR UNKNOWN INDICATION
  9. INTRATHECAL PAIN PUMP WITH BUPIVACAINE AND MORPHINE [Concomitant]
     Indication: PRODUCT USED FOR UNKNOWN INDICATION

REACTIONS (4)
  - Drug ineffective [Not Recovered/Not Resolved]
  - Psoriatic arthropathy [Not Recovered/Not Resolved]
  - Gait disturbance [Not Recovered/Not Resolved]
  - Photosensitivity reaction [Not Recovered/Not Resolved]
